FAERS Safety Report 25459024 (Version 4)
Quarter: 2025Q3

REPORT INFORMATION
  Report Type: Spontaneous
  Country: US (occurrence: US)
  Receive Date: 20250620
  Receipt Date: 20250801
  Transmission Date: 20251021
  Serious: No
  Sender: SYNDAX
  Company Number: US-SYNDAX PHARMACEUTICALS, INC.-2025US000491

PATIENT
  Sex: Male
  Weight: 93.982 kg

DRUGS (2)
  1. REVUFORJ [Suspect]
     Active Substance: REVUMENIB CITRATE
     Indication: Product used for unknown indication
     Dosage: 160 MILLIGRAM, BID
     Route: 048
  2. POSACONAZOLE [Concomitant]
     Active Substance: POSACONAZOLE
     Indication: Product used for unknown indication
     Route: 065

REACTIONS (4)
  - Product dose omission issue [Unknown]
  - Electrocardiogram change [Unknown]
  - Blood pressure abnormal [Unknown]
  - Cardiac disorder [Unknown]
